FAERS Safety Report 25969083 (Version 1)
Quarter: 2025Q4

REPORT INFORMATION
  Report Type: Spontaneous
  Country: EU (occurrence: EU)
  Receive Date: 20251028
  Receipt Date: 20251028
  Transmission Date: 20260118
  Serious: Yes (Other)
  Sender: AMGEN
  Company Number: None

PATIENT
  Age: 29 Year
  Sex: Male

DRUGS (2)
  1. ADALIMUMAB [Suspect]
     Active Substance: ADALIMUMAB
     Indication: Ankylosing spondylitis
     Dosage: UNK (20 MG INJECTABLE  SOLUTION IN PRE FILLED SYRINGE, 1 PRE-FILLED SYRINGE OF 0.2 ML (100 MG/ML)
     Route: 040
     Dates: start: 20250310
  2. HUMIRA [Concomitant]
     Active Substance: ADALIMUMAB
     Dosage: UNK
     Route: 058
     Dates: start: 2015

REACTIONS (2)
  - Dysaesthesia [Recovering/Resolving]
  - Allodynia [Recovering/Resolving]

NARRATIVE: CASE EVENT DATE: 20250310
